FAERS Safety Report 7320791-X (Version None)
Quarter: 2011Q1

REPORT INFORMATION
  Report Type: 
  Country: None (occurrence: None)
  Receive Date: 20110228
  Receipt Date: 20110221
  Transmission Date: 20110831
  Serious: Yes (Death, Other)
  Sender: FDA-Public Use
  Company Number: US-ROCHE-755524

PATIENT
  Age: 3 Year
  Sex: Male

DRUGS (1)
  1. TAMIFLU [Suspect]
     Dosage: THE PATIENT HAD TWO DOSES OF TAMIFLU
     Route: 065

REACTIONS (3)
  - ENCEPHALITIS INFLUENZAL [None]
  - HALLUCINATION [None]
  - ABNORMAL BEHAVIOUR [None]
